FAERS Safety Report 9747630 (Version 1)
Quarter: 2013Q4

REPORT INFORMATION
  Report Type: Spontaneous
  Country: US (occurrence: None)
  Receive Date: 20131205
  Receipt Date: 20131205
  Transmission Date: 20140711
  Serious: Yes (Hospitalization)
  Sender: FDA-Public Use
  Company Number: 20130684

PATIENT
  Age: 23 Year
  Sex: Female

DRUGS (2)
  1. FOSPHENYTOIN SODIUM [Suspect]
     Indication: STATUS EPILEPTICUS
     Dosage: THEN 800
  2. PHENOBARBITAL [Concomitant]

REACTIONS (7)
  - Toxicity to various agents [None]
  - Coma [None]
  - Haemodialysis [None]
  - Respiratory failure [None]
  - Brain injury [None]
  - Hypotonia [None]
  - Convulsion [None]
